FAERS Safety Report 5680366-5 (Version None)
Quarter: 2008Q1

REPORT INFORMATION
  Report Type: 
  Country: None (occurrence: None)
  Receive Date: 20080326
  Receipt Date: 20080319
  Transmission Date: 20080703
  Serious: Yes (Death, Hospitalization, Other)
  Sender: FDA-Public Use
  Company Number: PL-ABBOTT-08P-129-0439527-00

PATIENT
  Age: 47 Year
  Sex: Male

DRUGS (3)
  1. LOPINAVIR AND RITONAVIR [Suspect]
     Indication: HIV INFECTION
     Dosage: NOT REPORTED
     Dates: start: 20030513
  2. STAVUDINE [Suspect]
     Indication: HIV INFECTION
     Dosage: NOT REPORTED
     Dates: start: 20030513
  3. LAMIVUDINE [Suspect]
     Indication: HIV INFECTION
     Dosage: NOT REPORTED
     Dates: start: 20030513

REACTIONS (4)
  - BURKITT'S LYMPHOMA [None]
  - IMMUNE RECONSTITUTION SYNDROME [None]
  - MYCOBACTERIAL INFECTION [None]
  - PNEUMOCYSTIS JIROVECI INFECTION [None]
